FAERS Safety Report 7077962-X (Version None)
Quarter: 2010Q4

REPORT INFORMATION
  Report Type: 
  Country: None (occurrence: None)
  Receive Date: 20101101
  Receipt Date: 20100924
  Transmission Date: 20110411
  Serious: No
  Sender: FDA-Public Use
  Company Number: US-BAYER-201020789BCC

PATIENT
  Age: 91 Year
  Sex: Male
  Weight: 84 kg

DRUGS (3)
  1. ALEVE (CAPLET) [Suspect]
     Dosage: BOTTLE COUNT 75S
     Route: 048
     Dates: end: 20100901
  2. NATURAL SUPPLEMENTS [Concomitant]
     Route: 065
  3. ASPIRIN [Concomitant]
     Route: 065

REACTIONS (2)
  - BLOOD URINE PRESENT [None]
  - HAEMORRHAGE URINARY TRACT [None]
